FAERS Safety Report 7919533-6 (Version None)
Quarter: 2011Q4

REPORT INFORMATION
  Report Type: 
  Country: None (occurrence: None)
  Receive Date: 20111117
  Receipt Date: 20111103
  Transmission Date: 20120403
  Serious: Yes (Hospitalization)
  Sender: FDA-Public Use
  Company Number: FR-UCBSA-042718

PATIENT
  Age: 25 Year
  Sex: Female
  Weight: 49 kg

DRUGS (23)
  1. VIMPAT [Suspect]
     Indication: EPILEPSY
     Dosage: DOSE INCREASED
     Dates: start: 20110101, end: 20110101
  2. VITAMIN D [Concomitant]
  3. DEDROGYL [Concomitant]
     Dosage: 5 DROPS EVERY SUNDAY
  4. KEPPRA [Suspect]
     Indication: EPILEPSY
     Route: 042
     Dates: start: 20110629
  5. LAMICTAL [Concomitant]
     Indication: EPILEPSY
     Dosage: PROGRESSIVELY DECREASED
     Dates: end: 20110101
  6. NORDITROPINE [Concomitant]
  7. VIMPAT [Suspect]
     Dosage: 50 MG IN MORNING AND 100 MG IN EVENING
     Dates: start: 20110101, end: 20110101
  8. HYDROCORTISONE [Concomitant]
     Dates: start: 20110101
  9. HYDROCORTISONE [Concomitant]
     Dates: start: 20110101, end: 20110101
  10. HYDROCORTISONE [Concomitant]
  11. UN-ALPHA [Concomitant]
  12. LAMICTAL [Concomitant]
     Dosage: 150 X 2
     Route: 048
     Dates: start: 20060101, end: 20110601
  13. LEVOTHYROXINE SODIUM [Concomitant]
     Dosage: TOTAL DAILY DOSE : 75 MCG
  14. POTASSIUM CHLORIDE [Concomitant]
     Dosage: 2 CAPSULES DAILY; BY NASOGASTRIC TUBE
  15. VIMPAT [Suspect]
     Route: 048
     Dates: start: 20090901, end: 20110601
  16. LYRICA [Concomitant]
     Indication: EPILEPSY
     Route: 048
     Dates: start: 20060101
  17. DUPHASTON [Concomitant]
     Dosage: 10 MG; FROM 15TH TO 25TH OF MENSTRUAL CYCLE
  18. RABEPRAZOLE SODIUM [Concomitant]
  19. TRANSIPEG [Concomitant]
  20. LAMICTAL [Concomitant]
     Dates: start: 20110101, end: 20110101
  21. HYDROCORTISONE [Concomitant]
  22. PROVAMES [Concomitant]
     Dosage: TOTAL DAILY DOSE : 2 MG; FROM 1ST TO 25TH DAY OF MENSTRUAL CYCLE
  23. NORDITROPINE [Concomitant]
     Dosage: TOTAL DAILY DOSE : 0.8 MG
     Route: 058

REACTIONS (16)
  - PULMONARY EMBOLISM [None]
  - ASPIRATION [None]
  - PNEUMOTHORAX [None]
  - LARYNGEAL OEDEMA [None]
  - ABNORMAL BEHAVIOUR [None]
  - AGITATION [None]
  - SKIN LESION [None]
  - BRONCHIAL OBSTRUCTION [None]
  - PYREXIA [None]
  - RASH [None]
  - THROMBOSIS [None]
  - HYPOKALAEMIA [None]
  - STATUS EPILEPTICUS [None]
  - LIVER DISORDER [None]
  - STAPHYLOCOCCAL INFECTION [None]
  - HYPOTENSION [None]
